FAERS Safety Report 13006402 (Version 1)
Quarter: 2016Q4

REPORT INFORMATION
  Report Type: Spontaneous
  Country: CH (occurrence: CH)
  Receive Date: 20161207
  Receipt Date: 20161207
  Transmission Date: 20170207
  Serious: Yes (Other)
  Sender: FDA-Public Use
  Company Number: CH-TEVA-715651ISR

PATIENT
  Age: 61 Year
  Sex: Female
  Weight: 65 kg

DRUGS (9)
  1. CIPROFLOXACIN MEPHA [Suspect]
     Active Substance: CIPROFLOXACIN
     Indication: URINARY TRACT INFECTION
     Dosage: 1000 MILLIGRAM DAILY;
     Route: 048
     Dates: start: 20161010, end: 20161016
  2. OLFEN [Concomitant]
     Active Substance: DICLOFENAC SODIUM
     Indication: PAIN
     Dosage: 75 MILLIGRAM DAILY;
     Route: 048
     Dates: start: 20160621
  3. PANADOL [Concomitant]
     Active Substance: ACETAMINOPHEN
     Indication: PAIN
     Dosage: 665 MILLIGRAM DAILY;
     Route: 048
     Dates: start: 20160802
  4. CO-AMOXI [Suspect]
     Active Substance: AMOXICILLIN\CLAVULANATE POTASSIUM
     Indication: URINARY TRACT INFECTION
     Dosage: 2000 MILLIGRAM DAILY;
     Route: 048
     Dates: start: 20161005, end: 20161010
  5. CALCIPOS D3 [Concomitant]
     Indication: OSTEOPOROSIS
     Dosage: 500 MILLIGRAM DAILY;
     Route: 048
     Dates: start: 20160621
  6. ACTEMRA [Suspect]
     Active Substance: TOCILIZUMAB
     Indication: POLYARTHRITIS
     Route: 058
     Dates: start: 20161003
  7. ACIDUM FOLICUM [Concomitant]
     Active Substance: FOLIC ACID
     Indication: PROPHYLAXIS
     Route: 048
     Dates: start: 20160926
  8. PANTOPRAZOL MEPHA [Concomitant]
     Indication: PROPHYLAXIS
     Dosage: 40 MILLIGRAM DAILY;
     Route: 048
     Dates: start: 20160621
  9. LYRICA [Concomitant]
     Active Substance: PREGABALIN
     Indication: NEURALGIA
     Dosage: 150 MILLIGRAM DAILY;
     Route: 048
     Dates: start: 20160621

REACTIONS (2)
  - Hyperthyroidism [Not Recovered/Not Resolved]
  - Thyroiditis subacute [Not Recovered/Not Resolved]

NARRATIVE: CASE EVENT DATE: 20161011
